FAERS Safety Report 4874468-0 (Version None)
Quarter: 2005Q4

REPORT INFORMATION
  Report Type: 
  Country: None (occurrence: None)
  Receive Date: 20051201
  Receipt Date: 20050811
  Transmission Date: 20060501
  Serious: No
  Sender: FDA-Public Use
  Company Number: 2005PV001093

PATIENT
  Age: 60 Year
  Sex: Female
  Weight: 85.2762 kg

DRUGS (5)
  1. BYETTA [Suspect]
     Indication: DIABETES MELLITUS NON-INSULIN-DEPENDENT
     Dosage: 5 MCG;QAM;SC
     Route: 058
     Dates: start: 20050803
  2. ACTOS [Suspect]
     Indication: DIABETES MELLITUS NON-INSULIN-DEPENDENT
     Dosage: PO
     Route: 048
  3. AMARYL [Concomitant]
  4. PRAVACHOL [Concomitant]
  5. ALTACE [Concomitant]

REACTIONS (4)
  - FLUID RETENTION [None]
  - HEADACHE [None]
  - NAUSEA [None]
  - WEIGHT INCREASED [None]
